FAERS Safety Report 5301988-7 (Version None)
Quarter: 2007Q2

REPORT INFORMATION
  Report Type: 
  Country: None (occurrence: None)
  Receive Date: 20070419
  Receipt Date: 20070412
  Transmission Date: 20071010
  Serious: Yes (Hospitalization)
  Sender: FDA-Public Use
  Company Number: TW-AVENTIS-200713268GDDC

PATIENT
  Age: 23 Year
  Sex: Male

DRUGS (6)
  1. METRONIDAZOLE [Suspect]
  2. METRONIDAZOLE [Suspect]
     Indication: DUODENAL ULCER
  3. CLARITHROMYCIN [Suspect]
  4. CLARITHROMYCIN [Suspect]
     Indication: DUODENAL ULCER
  5. OMEPRAZOLE [Suspect]
  6. OMEPRAZOLE [Suspect]
     Indication: DUODENAL ULCER

REACTIONS (1)
  - HICCUPS [None]
